FAERS Safety Report 23841041 (Version 1)
Quarter: 2024Q2

REPORT INFORMATION
  Report Type: Other
  Country: CN (occurrence: None)
  Receive Date: 20240510
  Receipt Date: 20240510
  Transmission Date: 20240716
  Serious: Yes (Other)
  Sender: FDA-Public Use
  Company Number: CN-ROCHE-3481514

PATIENT
  Age: 54 Year
  Sex: Female

DRUGS (20)
  1. CAPECITABINE [Suspect]
     Active Substance: CAPECITABINE
     Indication: HER2 positive breast cancer
     Dosage: D1-D14, TWO CYCLES
     Route: 048
     Dates: start: 20210927, end: 202112
  2. CAPECITABINE [Suspect]
     Active Substance: CAPECITABINE
     Dosage: D1-D14 FOUR CYCLES
     Route: 048
     Dates: start: 20211227, end: 202203
  3. TRASTUZUMAB [Suspect]
     Active Substance: TRASTUZUMAB
     Indication: HER2 positive breast cancer
     Route: 042
     Dates: start: 20200901, end: 202011
  4. TRASTUZUMAB [Suspect]
     Active Substance: TRASTUZUMAB
     Dosage: D1
     Route: 042
     Dates: start: 20200901, end: 202011
  5. TRASTUZUMAB [Suspect]
     Active Substance: TRASTUZUMAB
     Dosage: D1 FOR TWO CYCLES
     Route: 042
     Dates: start: 20210927, end: 202112
  6. TRASTUZUMAB [Suspect]
     Active Substance: TRASTUZUMAB
     Dosage: D1 WITH FOUR CYCLES
     Route: 042
     Dates: start: 20211227, end: 202203
  7. PERTUZUMAB [Suspect]
     Active Substance: PERTUZUMAB
     Indication: HER2 positive breast cancer
     Route: 042
     Dates: start: 20200901, end: 202011
  8. PERTUZUMAB [Suspect]
     Active Substance: PERTUZUMAB
     Dosage: D1 FOR TWO CYCLES
     Route: 042
     Dates: start: 20200901, end: 202011
  9. PERTUZUMAB [Suspect]
     Active Substance: PERTUZUMAB
     Dosage: D1
     Route: 042
     Dates: start: 20210927, end: 202112
  10. PERTUZUMAB [Suspect]
     Active Substance: PERTUZUMAB
     Dosage: FOUR CYCLES
     Route: 042
     Dates: start: 20211127, end: 202203
  11. PACLITAXEL [Suspect]
     Active Substance: PACLITAXEL
     Indication: HER2 positive breast cancer
     Dosage: D1 D8 IVGTT 21 DAYS PER CYCLE
     Route: 042
     Dates: start: 20200714, end: 202008
  12. PACLITAXEL [Suspect]
     Active Substance: PACLITAXEL
     Dosage: D1, D8 IVGTT
     Route: 042
     Dates: start: 20200901, end: 202011
  13. PACLITAXEL [Suspect]
     Active Substance: PACLITAXEL
     Dosage: D1-D8 FOR TWO CYCLES
     Route: 042
     Dates: start: 20210927, end: 202112
  14. CARBOPLATIN [Suspect]
     Active Substance: CARBOPLATIN
     Indication: HER2 positive breast cancer
     Dosage: D1 IVGTT FOR TWO CYCLES
     Route: 042
     Dates: start: 20200901, end: 202011
  15. PYROTINIB [Suspect]
     Active Substance: PYROTINIB
     Indication: HER2 positive breast cancer
     Dosage: FOUR CYCLES
     Route: 048
     Dates: start: 20211227, end: 202203
  16. INVESTIGATIONAL PRODUCT [Suspect]
     Active Substance: INVESTIGATIONAL PRODUCT
     Indication: HER2 positive breast cancer
     Dosage: IVGTT D1
     Route: 042
     Dates: start: 20220318
  17. VINORELBINE [Suspect]
     Active Substance: VINORELBINE TARTRATE
     Indication: HER2 positive breast cancer
     Dosage: IVGTT D1, D5
     Route: 042
     Dates: start: 20220318
  18. CISPLATIN [Suspect]
     Active Substance: CISPLATIN
     Indication: HER2 positive breast cancer
     Dosage: IVGTT D1
     Route: 042
     Dates: start: 20220318
  19. DOCETAXEL [Suspect]
     Active Substance: DOCETAXEL\DOCETAXEL ANHYDROUS
     Indication: HER2 positive breast cancer
     Dosage: TWO CYCLES
     Route: 065
     Dates: start: 202109, end: 202112
  20. FLUOROURACIL [Concomitant]
     Active Substance: FLUOROURACIL
     Indication: HER2 positive breast cancer
     Dosage: D1 IVGTT, WITH 21 DAYS PER CYCLE
     Route: 042
     Dates: start: 20200714, end: 202008

REACTIONS (5)
  - Myelosuppression [Unknown]
  - Disease progression [Recovering/Resolving]
  - Hypoaesthesia [Unknown]
  - Nausea [Unknown]
  - Vomiting [Unknown]
